FAERS Safety Report 14681481 (Version 1)
Quarter: 2018Q1

REPORT INFORMATION
  Report Type: Spontaneous
  Country: US (occurrence: US)
  Receive Date: 20180326
  Receipt Date: 20180326
  Transmission Date: 20180509
  Serious: No
  Sender: FDA-Public Use
  Company Number: US-AKRON, INC.-2044549

PATIENT
  Age: 21 Year
  Sex: Male

DRUGS (1)
  1. COGENTIN [Suspect]
     Active Substance: BENZTROPINE MESYLATE
     Route: 042

REACTIONS (5)
  - Nausea [None]
  - Fatigue [None]
  - Lethargy [None]
  - Paraesthesia [None]
  - Hypoaesthesia [None]
